FAERS Safety Report 7816439-8 (Version None)
Quarter: 2011Q4

REPORT INFORMATION
  Report Type: 
  Country: None (occurrence: None)
  Receive Date: 20111017
  Receipt Date: 20111005
  Transmission Date: 20120403
  Serious: Yes (Hospitalization, Other)
  Sender: FDA-Public Use
  Company Number: HR-JNJFOC-20111004103

PATIENT
  Age: 28 Year
  Sex: Female

DRUGS (5)
  1. DEPAKENE [Suspect]
     Indication: PSYCHOTIC DISORDER
     Dosage: 300MG-0-500MG DECREASED TO 150MG-0-150MG
     Route: 065
     Dates: start: 20090501
  2. RISPERIDONE [Suspect]
     Indication: PSYCHOTIC DISORDER
     Route: 030
     Dates: start: 20090501
  3. CLOZAPINE [Suspect]
     Indication: PSYCHOTIC DISORDER
     Dosage: 0-1/2-1
     Route: 065
     Dates: start: 20090501
  4. RISPERIDONE [Suspect]
     Indication: PSYCHOTIC DISORDER
     Dosage: DOSING SCHEDULE: 2 MG 1,0,0 (2MG ON EVERY THIRD DAY).
     Route: 048
     Dates: start: 20090501
  5. FLUVOXAMINE MALEATE [Suspect]
     Indication: PSYCHOTIC DISORDER
     Dosage: 0-0-1 1/2 DECREASED TO 0-0-1
     Route: 065
     Dates: start: 20090501

REACTIONS (7)
  - ACTIVITIES OF DAILY LIVING IMPAIRED [None]
  - DYSPHORIA [None]
  - AGGRESSION [None]
  - ANXIETY [None]
  - PERSEVERATION [None]
  - WEIGHT INCREASED [None]
  - PSYCHOMOTOR HYPERACTIVITY [None]
